FAERS Safety Report 20330072 (Version 7)
Quarter: 2023Q1

REPORT INFORMATION
  Report Type: Report from Study
  Country: MX (occurrence: MX)
  Receive Date: 20220113
  Receipt Date: 20230206
  Transmission Date: 20230418
  Serious: Yes (Other)
  Sender: FDA-Public Use
  Company Number: MX-NOVARTISPH-NVSC2021MX159642

PATIENT
  Age: 37 Year
  Sex: Female
  Weight: 73 kg

DRUGS (3)
  1. GILENYA [Suspect]
     Active Substance: FINGOLIMOD HYDROCHLORIDE
     Indication: Multiple sclerosis
     Dosage: 0.5 MG, QD
     Route: 048
     Dates: start: 202005, end: 202212
  2. GILENYA [Suspect]
     Active Substance: FINGOLIMOD HYDROCHLORIDE
     Dosage: 0.5 MG, QD
     Route: 048
     Dates: start: 20201209
  3. FLUNARIZINE [Suspect]
     Active Substance: FLUNARIZINE
     Indication: Asthenia
     Dosage: 5 MG, QD
     Route: 048
     Dates: start: 20220209

REACTIONS (16)
  - Immunodeficiency [Not Recovered/Not Resolved]
  - Multiple sclerosis relapse [Recovering/Resolving]
  - Paraesthesia [Recovering/Resolving]
  - Multiple sclerosis pseudo relapse [Unknown]
  - Burning sensation [Not Recovered/Not Resolved]
  - Amnesia [Unknown]
  - Contusion [Recovering/Resolving]
  - Discomfort [Unknown]
  - Body temperature increased [Unknown]
  - Pain [Unknown]
  - Insomnia [Not Recovered/Not Resolved]
  - Fall [Not Recovered/Not Resolved]
  - Asthenia [Not Recovered/Not Resolved]
  - COVID-19 [Recovered/Resolved]
  - Fatigue [Not Recovered/Not Resolved]
  - Product dose omission issue [Not Recovered/Not Resolved]

NARRATIVE: CASE EVENT DATE: 20210702
